FAERS Safety Report 8106544-3 (Version None)
Quarter: 2012Q1

REPORT INFORMATION
  Report Type: 
  Country: None (occurrence: None)
  Receive Date: 20120202
  Receipt Date: 20120125
  Transmission Date: 20120608
  Serious: Yes (Life-Threatening, Hospitalization)
  Sender: FDA-Public Use
  Company Number: JP-BRISTOL-MYERS SQUIBB COMPANY-16360190

PATIENT
  Age: 80 Year
  Sex: Male

DRUGS (1)
  1. ABILIFY [Suspect]
     Indication: PSYCHIATRIC SYMPTOM
     Dosage: 0.1% PERCENT
     Route: 048
     Dates: start: 20120110, end: 20120113

REACTIONS (1)
  - LIVER DISORDER [None]
